FAERS Safety Report 17477048 (Version 1)
Quarter: 2020Q1

REPORT INFORMATION
  Report Type: Report from Study
  Country: CA (occurrence: CA)
  Receive Date: 20200228
  Receipt Date: 20200228
  Transmission Date: 20200409
  Serious: Yes (Hospitalization, Other)
  Sender: FDA-Public Use
  Company Number: CA-JNJFOC-20191006449

PATIENT
  Sex: Female

DRUGS (1)
  1. STELARA [Suspect]
     Active Substance: USTEKINUMAB
     Indication: PSORIATIC ARTHROPATHY
     Dosage: STRENGTH = 90 MG
     Route: 058
     Dates: start: 20150901

REACTIONS (6)
  - Product dose omission [Unknown]
  - Influenza [Recovering/Resolving]
  - Cardiac disorder [Unknown]
  - Malaise [Unknown]
  - Pulmonary oedema [Unknown]
  - Dehydration [Unknown]

NARRATIVE: CASE EVENT DATE: 2019
